FAERS Safety Report 9581053 (Version 1)
Quarter: 2013Q4

REPORT INFORMATION
  Report Type: Spontaneous
  Country: ES (occurrence: ES)
  Receive Date: 20131002
  Receipt Date: 20131002
  Transmission Date: 20140711
  Serious: Yes (Other)
  Sender: FDA-Public Use
  Company Number: ES-009507513-1309ESP014238

PATIENT
  Age: 67 Year
  Sex: Female

DRUGS (5)
  1. TEMODAL [Suspect]
     Indication: MALIGNANT MELANOMA
     Dosage: UNK
     Route: 048
     Dates: start: 201209, end: 2013
  2. TEMODAL [Suspect]
     Indication: METASTASES TO LUNG
  3. TEMODAL [Suspect]
     Indication: METASTASES TO CENTRAL NERVOUS SYSTEM
  4. CARBOPLATIN (+) PACLITAXEL [Concomitant]
     Indication: MALIGNANT MELANOMA
     Dosage: WEEKLY
     Dates: start: 2013, end: 20130701
  5. CARBOPLATIN (+) PACLITAXEL [Concomitant]
     Dosage: UNK UNK, QW
     Dates: start: 20130820

REACTIONS (4)
  - Metastases to lung [Unknown]
  - Drug effect decreased [Unknown]
  - Femur fracture [Recovered/Resolved]
  - Surgery [Recovered/Resolved]
